FAERS Safety Report 4337577-0 (Version None)
Quarter: 2004Q2

REPORT INFORMATION
  Report Type: 
  Country: None (occurrence: None)
  Receive Date: 20040412
  Receipt Date: 20040412
  Transmission Date: 20050107
  Serious: Yes (Other)
  Sender: FDA-Public Use
  Company Number: None

PATIENT
  Sex: Male
  Weight: 138.8007 kg

DRUGS (3)
  1. DEMADEX [Suspect]
     Indication: ISCHAEMIC CARDIOMYOPATHY
     Dosage: TIVA - MANUFACTURER
  2. TORSEMIDE [Suspect]
     Indication: CORONARY ARTERY DISEASE
     Dates: start: 20030818
  3. TORSEMIDE [Suspect]
     Indication: VENTRICULAR TACHYCARDIA
     Dates: start: 20030818

REACTIONS (3)
  - DYSURIA [None]
  - FLUID RETENTION [None]
  - PHARMACEUTICAL PRODUCT COMPLAINT [None]
